FAERS Safety Report 9547739 (Version 2)
Quarter: 2013Q4

REPORT INFORMATION
  Report Type: Not Available
  Country: SE (occurrence: SE)
  Receive Date: 20130924
  Receipt Date: 20131031
  Transmission Date: 20140711
  Serious: Yes (Other)
  Sender: FDA-Public Use
  Company Number: SE-ASTELLAS-2013EU008070

PATIENT
  Age: 65 Year
  Sex: Female

DRUGS (3)
  1. BETMIGA [Suspect]
     Indication: URGE INCONTINENCE
     Dosage: 25 MG, UNKNOWN/D
     Route: 048
     Dates: start: 20130625, end: 20130627
  2. CITALOPRAM [Concomitant]
     Dosage: UNK
     Route: 065
  3. OESTRING [Concomitant]
     Dosage: UNK

REACTIONS (5)
  - Oedema [Recovered/Resolved]
  - Ocular hyperaemia [Recovered/Resolved]
  - General physical health deterioration [Recovered/Resolved]
  - Malaise [Recovered/Resolved]
  - Diarrhoea [Recovered/Resolved]
